FAERS Safety Report 11077919 (Version 2)
Quarter: 2015Q2

REPORT INFORMATION
  Report Type: Spontaneous
  Country: US (occurrence: US)
  Receive Date: 20150430
  Receipt Date: 20150522
  Transmission Date: 20150821
  Serious: Yes (Death, Hospitalization, Other)
  Sender: FDA-Public Use
  Company Number: US-AMGEN-USASP2015041170

PATIENT
  Age: 54 Year
  Sex: Female
  Weight: 76.19 kg

DRUGS (3)
  1. NEULASTA [Suspect]
     Active Substance: PEGFILGRASTIM
     Indication: NEUTROPENIA
     Dosage: 6 MG, Q 14 DAYS
     Route: 058
     Dates: start: 20140527, end: 20140527
  2. AZACITIDINE. [Concomitant]
     Active Substance: AZACITIDINE
     Indication: ACUTE MYELOID LEUKAEMIA
     Dosage: 135 MG, ON DAY 1-5, 8, 9
     Route: 042
     Dates: start: 20141103, end: 20141201
  3. KYTRIL [Concomitant]
     Active Substance: GRANISETRON HYDROCHLORIDE
     Dosage: 1000 MCG, ON DAY 1-5, 8, 9
     Route: 042

REACTIONS (2)
  - Sepsis [Unknown]
  - Acute myeloid leukaemia [Fatal]
